FAERS Safety Report 23350207 (Version 1)
Quarter: 2023Q4

REPORT INFORMATION
  Report Type: Report from Study
  Country: US (occurrence: US)
  Receive Date: 20231229
  Receipt Date: 20231229
  Transmission Date: 20240110
  Serious: Yes (Other)
  Sender: FDA-Public Use
  Company Number: US-UCBSA-2023054631

PATIENT
  Sex: Female

DRUGS (6)
  1. FINTEPLA [Suspect]
     Active Substance: FENFLURAMINE
     Indication: Lennox-Gastaut syndrome
     Dosage: 6 MILLILITER, 2X/DAY (BID)
     Dates: start: 20230724
  2. FINTEPLA [Suspect]
     Active Substance: FENFLURAMINE
     Dosage: 5 MILLILITER, 2X/DAY (BID)
     Dates: start: 2023
  3. FINTEPLA [Suspect]
     Active Substance: FENFLURAMINE
     Dosage: 4 MILLILITER, 2X/DAY (BID)
     Dates: start: 2023
  4. RUFINAMIDE [Concomitant]
     Active Substance: RUFINAMIDE
     Indication: Epilepsy
     Dosage: 800 MILLIGRAM, 2X/DAY (BID)
  5. LAMOTRIGINE [Concomitant]
     Active Substance: LAMOTRIGINE
     Indication: Epilepsy
     Dosage: 150 MG AM AND 300 MG PM
  6. CLONAZEPAM [Concomitant]
     Active Substance: CLONAZEPAM
     Indication: Epilepsy
     Dosage: 0.5 MILLIGRAM, 2X/DAY (BID)

REACTIONS (13)
  - Tonic convulsion [Unknown]
  - Petit mal epilepsy [Unknown]
  - Drop attacks [Unknown]
  - Restlessness [Not Recovered/Not Resolved]
  - Insomnia [Not Recovered/Not Resolved]
  - Abnormal behaviour [Not Recovered/Not Resolved]
  - Somnolence [Unknown]
  - Injury [Unknown]
  - Mood swings [Unknown]
  - Anxiety [Unknown]
  - Sensory disturbance [Unknown]
  - Headache [Unknown]
  - Irritability [Unknown]

NARRATIVE: CASE EVENT DATE: 20230101
